FAERS Safety Report 7449899-5 (Version None)
Quarter: 2011Q2

REPORT INFORMATION
  Report Type: 
  Country: None (occurrence: None)
  Receive Date: 20110502
  Receipt Date: 20110329
  Transmission Date: 20111010
  Serious: Yes (Hospitalization)
  Sender: FDA-Public Use
  Company Number: US-BAYER-201037042NA

PATIENT
  Sex: Female
  Weight: 85 kg

DRUGS (10)
  1. YASMIN [Suspect]
     Indication: PREMENSTRUAL SYNDROME
     Dosage: UNK
     Route: 048
     Dates: start: 20011201, end: 20020923
  2. ZOLOFT [Concomitant]
  3. CELEXA [Concomitant]
  4. NSAID'S [Concomitant]
  5. NASONEX [Concomitant]
  6. ANTIBIOTICS [Concomitant]
  7. YASMIN [Suspect]
  8. LEXAPRO [Concomitant]
  9. ASCORBIC ACID [Concomitant]
  10. COMBIVENT [Concomitant]

REACTIONS (3)
  - PULMONARY EMBOLISM [None]
  - DYSPNOEA [None]
  - DEEP VEIN THROMBOSIS [None]
